FAERS Safety Report 24728933 (Version 2)
Quarter: 2024Q4

REPORT INFORMATION
  Report Type: Report from Study
  Country: US (occurrence: US)
  Receive Date: 20241212
  Receipt Date: 20241230
  Transmission Date: 20250115
  Serious: Yes (Hospitalization, Other)
  Sender: ABBVIE
  Company Number: US-ABBVIE-6041412

PATIENT
  Age: 59 Year
  Sex: Male
  Weight: 98.429 kg

DRUGS (1)
  1. SKYRIZI [Suspect]
     Active Substance: RISANKIZUMAB-RZAA
     Indication: Psoriasis
     Dosage: FORM STRENGTH: 150 MILLIGRAM
     Route: 058
     Dates: start: 20211209, end: 20240822

REACTIONS (11)
  - Internal haemorrhage [Recovering/Resolving]
  - Hypoaesthesia [Recovering/Resolving]
  - Skin disorder [Not Recovered/Not Resolved]
  - Elbow operation [Recovering/Resolving]
  - Nephrolithiasis [Recovering/Resolving]
  - Renal haematoma [Unknown]
  - Osteoarthritis [Recovering/Resolving]
  - Large intestine polyp [Recovered/Resolved]
  - Carpal tunnel syndrome [Unknown]
  - Cubital tunnel syndrome [Unknown]
  - Colectomy [Unknown]

NARRATIVE: CASE EVENT DATE: 20220101
